FAERS Safety Report 9379013 (Version 1)
Quarter: 2013Q2

REPORT INFORMATION
  Report Type: Spontaneous
  Country: US (occurrence: None)
  Receive Date: 20130626
  Receipt Date: 20130626
  Transmission Date: 20140414
  Serious: Yes (Other)
  Sender: FDA-Public Use
  Company Number: SP06662

PATIENT
  Age: 37 Year
  Sex: Female
  Weight: 106.6 kg

DRUGS (1)
  1. RELISTOR (INJECTION) [Suspect]
     Indication: CONSTIPATION
     Route: 058
     Dates: start: 20130408, end: 20130424

REACTIONS (7)
  - Pain [None]
  - Speech disorder [None]
  - Muscle contracture [None]
  - Muscle spasms [None]
  - Hyperhidrosis [None]
  - Feeling hot [None]
  - Dyspnoea [None]
